FAERS Safety Report 7653499-1 (Version None)
Quarter: 2011Q3

REPORT INFORMATION
  Report Type: 
  Country: None (occurrence: None)
  Receive Date: 20110803
  Receipt Date: 20110801
  Transmission Date: 20111222
  Serious: Yes (Hospitalization)
  Sender: FDA-Public Use
  Company Number: US-GLAXOSMITHKLINE-A0903377A

PATIENT
  Age: 51 Year
  Sex: Female

DRUGS (1)
  1. ALLI [Suspect]
     Indication: WEIGHT LOSS DIET
     Route: 048
     Dates: end: 20081001

REACTIONS (5)
  - HEPATIC ENZYME INCREASED [None]
  - ACUTE HEPATIC FAILURE [None]
  - LIVER TRANSPLANT [None]
  - RENAL FAILURE ACUTE [None]
  - HEPATIC FAILURE [None]
